FAERS Safety Report 9508296 (Version 3)
Quarter: 2013Q4

REPORT INFORMATION
  Report Type: Spontaneous
  Country: US (occurrence: US)
  Receive Date: 20130909
  Receipt Date: 20131204
  Transmission Date: 20140711
  Serious: No
  Sender: FDA-Public Use
  Company Number: US-PFIZER INC-2013258261

PATIENT
  Age: 44 Year
  Sex: Female
  Weight: 133 kg

DRUGS (9)
  1. LYRICA [Suspect]
     Indication: FIBROMYALGIA
     Dosage: 75 MG, 2X/DAY
     Route: 048
     Dates: start: 201208
  2. LYRICA [Suspect]
     Indication: NEURALGIA
     Dosage: 150 MG, 2X/DAY
     Route: 048
     Dates: start: 201208, end: 201305
  3. LYRICA [Suspect]
     Dosage: 150 MG, 2X/DAY
     Route: 048
  4. LYRICA [Suspect]
     Dosage: 150 MG, 2X/DAY
     Route: 048
     Dates: end: 20131101
  5. NOVOLOG [Concomitant]
     Indication: DIABETES MELLITUS
     Dosage: 40 IU, 3X/DAY
  6. LEVEMIR [Concomitant]
     Indication: DIABETES MELLITUS
     Dosage: 110 IU, 1X/DAY
  7. PRANDIN [Concomitant]
     Indication: DIABETES MELLITUS
     Dosage: 1 MG, 4X/DAY
     Route: 048
  8. LORTAB [Concomitant]
     Indication: PAIN
     Dosage: (7.5 MG TABLET BY SPLITTING INTO HALF), 1X/DAY
     Route: 048
  9. LORTAB [Concomitant]
     Indication: BONE DISORDER

REACTIONS (4)
  - Pain in extremity [Unknown]
  - Drug ineffective [Unknown]
  - Pain [Not Recovered/Not Resolved]
  - Insomnia [Unknown]
